FAERS Safety Report 5017864-3 (Version None)
Quarter: 2006Q2

REPORT INFORMATION
  Report Type: 
  Country: None (occurrence: None)
  Receive Date: 20060530
  Receipt Date: 20060515
  Transmission Date: 20061013
  Serious: Yes (Hospitalization, Other)
  Sender: FDA-Public Use
  Company Number: 2006064458

PATIENT
  Age: 46 Year
  Sex: Male
  Weight: 122.4712 kg

DRUGS (1)
  1. BEXTRA [Suspect]
     Indication: ARTHROPATHY
     Dosage: 20 MG (20 M G, 1 IN 1 D)

REACTIONS (2)
  - MYOCARDIAL INFARCTION [None]
  - STEVENS-JOHNSON SYNDROME [None]
